FAERS Safety Report 9246483 (Version 6)
Quarter: 2014Q2

REPORT INFORMATION
  Report Type: Report from Study
  Country: BR (occurrence: BR)
  Receive Date: 20130422
  Receipt Date: 20140411
  Transmission Date: 20141212
  Serious: Yes (Hospitalization, Other)
  Sender: FDA-Public Use
  Company Number: BR-ROCHE-1187459

PATIENT
  Age: 69 Year
  Sex: Female
  Weight: 86 kg

DRUGS (6)
  1. MABTHERA [Suspect]
     Indication: RHEUMATOID ARTHRITIS
     Route: 042
     Dates: start: 20120413, end: 20120430
  2. MABTHERA [Suspect]
     Dosage: RECENT DOSE RECEIVED ON 03-DEC-2013
     Route: 065
     Dates: start: 20130312
  3. CARVEDILOL [Concomitant]
  4. PURAN T4 [Concomitant]
  5. PREDNISONE [Concomitant]
  6. LEFLUNOMIDE [Concomitant]

REACTIONS (7)
  - Lung infection [Not Recovered/Not Resolved]
  - Cerebrovascular accident [Recovering/Resolving]
  - Rib fracture [Recovered/Resolved]
  - Arthralgia [Unknown]
  - Abdominal pain [Unknown]
  - Gastric disorder [Not Recovered/Not Resolved]
  - Haemoptysis [Not Recovered/Not Resolved]
